FAERS Safety Report 25161289 (Version 1)
Quarter: 2025Q2

REPORT INFORMATION
  Report Type: Spontaneous
  Country: US (occurrence: US)
  Receive Date: 20250404
  Receipt Date: 20250404
  Transmission Date: 20250717
  Serious: Yes (Other)
  Sender: RECKITT BENCKISER
  Company Number: US-INDIVIOR UK LIMITED-INDV-160159-2025

PATIENT
  Age: 37 Year
  Sex: Male

DRUGS (1)
  1. BUPRENORPHINE [Suspect]
     Active Substance: BUPRENORPHINE
     Indication: Drug use disorder
     Route: 060

REACTIONS (6)
  - Hallucination [Unknown]
  - Emotional distress [Unknown]
  - Restless legs syndrome [Unknown]
  - Confusional state [Unknown]
  - Lacrimation increased [Unknown]
  - Drug withdrawal syndrome [Unknown]
